FAERS Safety Report 22255622 (Version 1)
Quarter: 2023Q2

REPORT INFORMATION
  Report Type: Spontaneous
  Country: CN (occurrence: CN)
  Receive Date: 20230426
  Receipt Date: 20230426
  Transmission Date: 20230722
  Serious: Yes (Hospitalization, Other)
  Sender: FDA-Public Use
  Company Number: None

PATIENT
  Age: 56 Year
  Sex: Female
  Weight: 57 kg

DRUGS (10)
  1. CYCLOPHOSPHAMIDE [Suspect]
     Active Substance: CYCLOPHOSPHAMIDE
     Indication: Breast cancer female
     Dosage: 830 MG, QD, DILUTED WITH 500 ML 0.9% SODIUM CHLORIDE, D1, AS A PART OF TCH CHEMOTHERAPY
     Route: 041
     Dates: start: 20230406, end: 20230406
  2. CYCLOPHOSPHAMIDE [Suspect]
     Active Substance: CYCLOPHOSPHAMIDE
     Indication: Chemotherapy
  3. SODIUM CHLORIDE [Suspect]
     Active Substance: SODIUM CHLORIDE
     Indication: Medication dilution
     Dosage: 500 ML, QD, USED TO DILUTE 830 MG CYCLOPHOSPHAMIDE, D1, AS A PART OF TCH CHEMOTHERAPY
     Route: 041
     Dates: start: 20230406, end: 20230406
  4. DEXTROSE [Suspect]
     Active Substance: DEXTROSE\DEXTROSE MONOHYDRATE
     Indication: Medication dilution
     Dosage: 500 ML, QD, USED TO DILUTE 240 MG PACLITAXEL LIPOSOME, D1, AS A PART OF TCH CHEMOTHERAPY
     Route: 041
     Dates: start: 20230406, end: 20230406
  5. PACLITAXEL [Suspect]
     Active Substance: PACLITAXEL
     Indication: Breast cancer female
     Dosage: AS A PART OF TCH CHEMOTHERAPY, 240 MG, QD, DILUTED WITH 500 ML 5 % GLUCOSE, D1
     Route: 041
     Dates: start: 20230406, end: 20230406
  6. PACLITAXEL [Suspect]
     Active Substance: PACLITAXEL
     Indication: Chemotherapy
  7. CARBOPLATIN [Suspect]
     Active Substance: CARBOPLATIN
     Indication: Breast cancer female
     Dosage: AS A PART OF TCH CHEMOTHERAPY, SECOND CHEMOTHERAPY
     Route: 041
     Dates: start: 20230406
  8. CARBOPLATIN [Suspect]
     Active Substance: CARBOPLATIN
     Indication: Chemotherapy
  9. HERCEPTIN [Suspect]
     Active Substance: TRASTUZUMAB
     Indication: Breast cancer female
     Dosage: AS A PART OF TCH CHEMOTHERAPY, SECOND CHEMOTHERAPY
     Route: 065
     Dates: start: 20230406
  10. HERCEPTIN [Suspect]
     Active Substance: TRASTUZUMAB
     Indication: Chemotherapy

REACTIONS (1)
  - Platelet count decreased [Recovering/Resolving]

NARRATIVE: CASE EVENT DATE: 20230412
